FAERS Safety Report 21027926 (Version 1)
Quarter: 2022Q2

REPORT INFORMATION
  Report Type: Spontaneous
  Country: US (occurrence: None)
  Receive Date: 20220630
  Receipt Date: 20220630
  Transmission Date: 20220721
  Serious: Yes (unspecified)
  Sender: FDA-Public Use
  Company Number: None

PATIENT
  Age: 49 Year
  Sex: Female
  Weight: 72.8 kg

DRUGS (2)
  1. CASPOFUNGIN [Suspect]
     Active Substance: CASPOFUNGIN
     Dosage: FREQUENCY : DAILY;?
     Route: 042
     Dates: start: 20220427, end: 20220502
  2. VORICONAZOLE [Suspect]
     Active Substance: VORICONAZOLE
     Dosage: FREQUENCY : TWICE A DAY;?
     Route: 042
     Dates: start: 20220427, end: 20220502

REACTIONS (3)
  - Peripheral swelling [None]
  - Administration site extravasation [None]
  - Peripheral swelling [None]

NARRATIVE: CASE EVENT DATE: 20220502
